FAERS Safety Report 8605393-7 (Version None)
Quarter: 2012Q3

REPORT INFORMATION
  Report Type: 
  Country: None (occurrence: None)
  Receive Date: 20120820
  Receipt Date: 20120810
  Transmission Date: 20120928
  Serious: Yes (Hospitalization)
  Sender: FDA-Public Use
  Company Number: FR-SANOFI-AVENTIS-2012SA057387

PATIENT
  Age: 66 Year
  Sex: Female

DRUGS (21)
  1. CLAFORAN [Suspect]
     Indication: PNEUMONIA LEGIONELLA
     Route: 042
     Dates: start: 20120512, end: 20120514
  2. HYDREA [Concomitant]
     Indication: DEEP VEIN THROMBOSIS
     Dosage: 500 MG DAILY EVERY OTHER DAY - 1,000 MG DAILY EVERY OTHER DAY
     Route: 048
     Dates: end: 20120501
  3. PROPRANOLOL [Concomitant]
  4. ALDACTAZINE [Concomitant]
  5. METHOTREXATE SODIUM [Concomitant]
     Route: 058
  6. XYZAL [Concomitant]
  7. RIFADIN [Suspect]
     Indication: PNEUMONIA LEGIONELLA
     Route: 042
     Dates: start: 20120514, end: 20120519
  8. LASIX [Suspect]
     Route: 042
     Dates: start: 20120514, end: 20120515
  9. MICARDIS [Concomitant]
  10. ATORVASTATIN [Concomitant]
  11. TERBINAFINE HCL [Concomitant]
  12. ACTONEL [Concomitant]
  13. HUMALOG [Suspect]
     Route: 058
     Dates: start: 20120512, end: 20120517
  14. NEXIUM [Concomitant]
  15. AUGMENTIN '500' [Concomitant]
     Indication: COUGH
     Dates: start: 20120501
  16. AUGMENTIN '500' [Concomitant]
     Dates: start: 20120501
  17. CALCIPARINE [Suspect]
     Route: 058
     Dates: start: 20120514, end: 20120518
  18. ASPIRIN [Concomitant]
  19. AMITRIPTYLINE HYDROCHLORIDE [Concomitant]
  20. PREDNISONE TAB [Concomitant]
     Route: 048
  21. LORAZEPAM [Concomitant]

REACTIONS (1)
  - PANCREATITIS ACUTE [None]
